FAERS Safety Report 10551375 (Version 1)
Quarter: 2014Q4

REPORT INFORMATION
  Report Type: Spontaneous
  Country: US (occurrence: None)
  Receive Date: 20141028
  Receipt Date: 20141028
  Transmission Date: 20150529
  Serious: No
  Sender: FDA-Public Use
  Company Number: None

PATIENT
  Age: 56 Year
  Sex: Female

DRUGS (4)
  1. VICODIN [Concomitant]
     Active Substance: ACETAMINOPHEN\HYDROCODONE BITARTRATE
  2. METHOTREXATE [Concomitant]
     Active Substance: METHOTREXATE
  3. REMICADE [Suspect]
     Active Substance: INFLIXIMAB
     Route: 042
     Dates: start: 20130729, end: 20130825
  4. FOLIC ACID. [Concomitant]
     Active Substance: FOLIC ACID

REACTIONS (1)
  - Hospitalisation [None]

NARRATIVE: CASE EVENT DATE: 201408
